FAERS Safety Report 9046492 (Version 2)
Quarter: 2013Q1

REPORT INFORMATION
  Report Type: Spontaneous
  Country: US (occurrence: US)
  Receive Date: 20130204
  Receipt Date: 20130318
  Transmission Date: 20140127
  Serious: No
  Sender: FDA-Public Use
  Company Number: US-009507513-1301USA014192

PATIENT
  Sex: Female
  Weight: 136.5 kg

DRUGS (1)
  1. IMPLANON [Suspect]
     Dosage: UNK
     Route: 059
     Dates: end: 201301

REACTIONS (2)
  - Overdose [Unknown]
  - Weight increased [Unknown]
